FAERS Safety Report 7772298-3 (Version None)
Quarter: 2011Q3

REPORT INFORMATION
  Report Type: 
  Country: None (occurrence: None)
  Receive Date: 20110922
  Receipt Date: 20101109
  Transmission Date: 20111222
  Serious: No
  Sender: FDA-Public Use
  Company Number: US-ASTRAZENECA-2010SE53694

PATIENT
  Age: 49 Year
  Sex: Male

DRUGS (6)
  1. SEROQUEL XR [Suspect]
     Route: 048
     Dates: start: 20050101, end: 20100313
  2. SEROQUEL XR [Suspect]
     Indication: ASPERGER'S DISORDER
     Route: 048
     Dates: end: 20100313
  3. SEROQUEL XR [Suspect]
     Route: 048
     Dates: start: 20050101, end: 20100313
  4. FLUOXETINE [Suspect]
     Route: 065
  5. SEROQUEL XR [Suspect]
     Indication: OBSESSIVE-COMPULSIVE DISORDER
     Route: 048
     Dates: end: 20100313
  6. TRAZODONE HCL [Suspect]
     Route: 065

REACTIONS (5)
  - DRUG WITHDRAWAL SYNDROME [None]
  - WEIGHT INCREASED [None]
  - MYALGIA [None]
  - ANXIETY [None]
  - IRRITABILITY [None]
